FAERS Safety Report 26058926 (Version 1)
Quarter: 2025Q4

REPORT INFORMATION
  Report Type: Spontaneous
  Country: US (occurrence: US)
  Receive Date: 20251118
  Receipt Date: 20251118
  Transmission Date: 20260118
  Serious: No
  Sender: COLLEGIUM PHARMACEUTICAL
  Company Number: US-COLLEGIUM PHARMACEUTICAL, INC.-20250802463

PATIENT
  Sex: Female

DRUGS (2)
  1. BELBUCA [Suspect]
     Active Substance: BUPRENORPHINE HYDROCHLORIDE
     Indication: Product used for unknown indication
     Dosage: 75 MICROGRAM, UNKNOWN
     Route: 002
  2. BELBUCA [Suspect]
     Active Substance: BUPRENORPHINE HYDROCHLORIDE
     Dosage: 150 MICROGRAM, UNKNOWN
     Route: 002
     Dates: start: 20250604, end: 2025

REACTIONS (2)
  - Dental caries [Unknown]
  - Tooth fracture [Unknown]

NARRATIVE: CASE EVENT DATE: 20250801
